FAERS Safety Report 12411379 (Version 1)
Quarter: 2016Q2

REPORT INFORMATION
  Report Type: Spontaneous
  Country: US (occurrence: None)
  Receive Date: 20160526
  Receipt Date: 20160526
  Transmission Date: 20160815
  Serious: No
  Sender: FDA-Public Use
  Company Number: None

PATIENT
  Age: 67 Year
  Sex: Female
  Weight: 55 kg

DRUGS (7)
  1. VERSED [Concomitant]
     Active Substance: MIDAZOLAM HYDROCHLORIDE
  2. BICITRA [Concomitant]
     Active Substance: CITRIC ACID, 1-STEARYL ESTER\SODIUM CITRATE
  3. DEXAMETHASONE. [Concomitant]
     Active Substance: DEXAMETHASONE
  4. PEPCID [Concomitant]
     Active Substance: FAMOTIDINE
  5. SCOPOLAMINE [Concomitant]
     Active Substance: SCOPOLAMINE
  6. METOCLOPRAMIDE, 10MG [Suspect]
     Active Substance: METOCLOPRAMIDE
     Indication: SURGERY
     Dosage: 10 MG ONE TIME INTRAVENOUS (NOT OTHERWISE SPECIFIED)
     Route: 042
     Dates: start: 20160510, end: 20160510
  7. UNASYN [Concomitant]
     Active Substance: AMPICILLIN SODIUM\SULBACTAM SODIUM

REACTIONS (1)
  - Catatonia [None]

NARRATIVE: CASE EVENT DATE: 20160510
